FAERS Safety Report 22220461 (Version 4)
Quarter: 2023Q2

REPORT INFORMATION
  Report Type: Spontaneous
  Country: JP (occurrence: JP)
  Receive Date: 20230417
  Receipt Date: 20230614
  Transmission Date: 20230721
  Serious: Yes (Other)
  Sender: FDA-Public Use
  Company Number: JP-ONO-2023JP005264

PATIENT
  Age: 74 Year
  Sex: Male

DRUGS (2)
  1. YERVOY [Suspect]
     Active Substance: IPILIMUMAB
     Indication: Oesophageal carcinoma
     Dosage: TOTAL NUMBER OF DOSES: 3 TIMES
     Route: 041
     Dates: start: 20221208, end: 20230105
  2. OPDIVO [Suspect]
     Active Substance: NIVOLUMAB
     Indication: Oesophageal carcinoma
     Dosage: TOTAL NUMBER OF DOSES: 3 TIMES
     Route: 041
     Dates: start: 20221208, end: 20230105

REACTIONS (4)
  - Rhabdomyolysis [Recovering/Resolving]
  - Hepatic function abnormal [Recovering/Resolving]
  - Erythema [Recovering/Resolving]
  - Off label use [Unknown]

NARRATIVE: CASE EVENT DATE: 20230105
